FAERS Safety Report 12183301 (Version 1)
Quarter: 2016Q1

REPORT INFORMATION
  Report Type: Spontaneous
  Country: US (occurrence: None)
  Receive Date: 20160315
  Receipt Date: 20160315
  Transmission Date: 20160526
  Serious: Yes (Other)
  Sender: FDA-Public Use
  Company Number: None

PATIENT
  Age: 50 Year
  Sex: Female

DRUGS (1)
  1. SIMPONI [Suspect]
     Active Substance: GOLIMUMAB
     Indication: RHEUMATOID ARTHRITIS
     Route: 058
     Dates: start: 20160215

REACTIONS (5)
  - Pain in extremity [None]
  - Musculoskeletal pain [None]
  - Arthralgia [None]
  - Drug ineffective [None]
  - Inflammation [None]

NARRATIVE: CASE EVENT DATE: 20160215
